FAERS Safety Report 24422555 (Version 1)
Quarter: 2024Q4

REPORT INFORMATION
  Report Type: Spontaneous
  Country: US (occurrence: US)
  Receive Date: 20241010
  Receipt Date: 20241010
  Transmission Date: 20250115
  Serious: Yes (Life-Threatening, Hospitalization)
  Sender: MYLAN
  Company Number: US-MYLANLABS-2024M1090474

PATIENT
  Age: 31 Year
  Sex: Male

DRUGS (4)
  1. ACETAMINOPHEN [Suspect]
     Active Substance: ACETAMINOPHEN
     Indication: Product used for unknown indication
     Dosage: UNK
     Route: 048
  2. OLANZAPINE [Suspect]
     Active Substance: OLANZAPINE
     Indication: Agitation
     Dosage: UNK
     Route: 065
  3. HALOPERIDOL [Suspect]
     Active Substance: HALOPERIDOL
     Indication: Agitation
     Dosage: UNK
     Route: 065
  4. QUETIAPINE [Suspect]
     Active Substance: QUETIAPINE
     Indication: Agitation
     Dosage: UNK
     Route: 065

REACTIONS (4)
  - Suicide attempt [Recovering/Resolving]
  - Toxic encephalopathy [Recovering/Resolving]
  - Neuroleptic malignant syndrome [Recovering/Resolving]
  - Off label use [Unknown]
